FAERS Safety Report 9295895 (Version 2)
Quarter: 2013Q2

REPORT INFORMATION
  Report Type: Spontaneous
  Country: US (occurrence: US)
  Receive Date: 20130517
  Receipt Date: 20130620
  Transmission Date: 20140414
  Serious: No
  Sender: FDA-Public Use
  Company Number: US-009507513-1305USA005525

PATIENT
  Age: 3 Year
  Sex: Female
  Weight: 16.78 kg

DRUGS (1)
  1. CLARITIN ORAL SOLUTION [Suspect]
     Indication: HYPERSENSITIVITY
     Dosage: 5 MG, QD
     Route: 048
     Dates: start: 20130507

REACTIONS (2)
  - Dyspnoea [Recovered/Resolved]
  - Sudden onset of sleep [Recovered/Resolved]
